FAERS Safety Report 14641638 (Version 1)
Quarter: 2018Q1

REPORT INFORMATION
  Report Type: Spontaneous
  Country: US (occurrence: US)
  Receive Date: 20180315
  Receipt Date: 20180315
  Transmission Date: 20180509
  Serious: Yes (Death, Other)
  Sender: FDA-Public Use
  Company Number: US-009507513-1801USA014056

PATIENT
  Sex: Female
  Weight: 104.3 kg

DRUGS (1)
  1. BELSOMRA [Suspect]
     Active Substance: SUVOREXANT
     Indication: INSOMNIA
     Dosage: UNK, AT BEDTIME (HS)
     Route: 048
     Dates: start: 201612

REACTIONS (1)
  - Arrhythmia [Fatal]
